FAERS Safety Report 8796983 (Version 1)
Quarter: 2012Q4

REPORT INFORMATION
  Report Type: 
  Country: US (occurrence: US)
  Receive Date: 20120919
  Receipt Date: 20120919
  Transmission Date: 20130627
  Serious: Yes (Other)
  Sender: FDA-Public Use
  Company Number: US-MERCK-1209USA006094

PATIENT
  Age: 68 Year

DRUGS (1)
  1. VORINOSTAT [Suspect]
     Indication: MYCOSIS FUNGOIDES

REACTIONS (1)
  - Syncope [Unknown]
